FAERS Safety Report 19997087 (Version 1)
Quarter: 2021Q4

REPORT INFORMATION
  Report Type: Spontaneous
  Country: US (occurrence: US)
  Receive Date: 20211025
  Receipt Date: 20211025
  Transmission Date: 20220303
  Serious: Yes (Hospitalization)
  Sender: FDA-Public Use
  Company Number: None

PATIENT
  Age: 71 Year
  Sex: Male
  Weight: 51.7 kg

DRUGS (3)
  1. NIVOLUMAB [Suspect]
     Active Substance: NIVOLUMAB
     Indication: Non-small cell lung cancer
     Route: 042
     Dates: start: 20210414
  2. IPILIMUMAB [Suspect]
     Active Substance: IPILIMUMAB
     Indication: Non-small cell lung cancer
     Dosage: ?          OTHER FREQUENCY:Q6 WEEKS;
     Route: 042
     Dates: start: 20210414
  3. OXALIPLATIN [Concomitant]
     Active Substance: OXALIPLATIN

REACTIONS (2)
  - Pneumonia aspiration [None]
  - Cellulitis [None]

NARRATIVE: CASE EVENT DATE: 20211023
